FAERS Safety Report 14394452 (Version 7)
Quarter: 2018Q2

REPORT INFORMATION
  Report Type: Spontaneous
  Country: CA (occurrence: CA)
  Receive Date: 20180116
  Receipt Date: 20180621
  Transmission Date: 20180711
  Serious: Yes (Other)
  Sender: FDA-Public Use
  Company Number: CA-CELLTRION INC.-2016CA014375

PATIENT

DRUGS (12)
  1. INFLECTRA [Suspect]
     Active Substance: INFLIXIMAB-DYYB
     Dosage: 500 MG, CYCLIC (EVERY 6 WEEKS)
     Route: 042
     Dates: start: 20180525
  2. INFLECTRA [Suspect]
     Active Substance: INFLIXIMAB-DYYB
     Dosage: 500 MG, (EVERY 6 WEEKS)
     Route: 042
     Dates: start: 20180105
  3. INFLECTRA [Suspect]
     Active Substance: INFLIXIMAB-DYYB
     Indication: ANKYLOSING SPONDYLITIS
     Dosage: 365 MG, 0, 2, 6 WEEKS, THEN EVERY 8 WEEKS, THEN EVERY 8 WEEKS FOR 5 MONTHS)
     Route: 042
     Dates: start: 20161104, end: 2017
  4. GABAPENTIN. [Concomitant]
     Active Substance: GABAPENTIN
     Indication: PAIN
     Dosage: 100 MG, 1X/DAY
     Route: 065
  5. INFLECTRA [Suspect]
     Active Substance: INFLIXIMAB-DYYB
     Dosage: 365 MG, (EVERY 6 WEEKS)
     Route: 042
     Dates: start: 20171104, end: 20171124
  6. MIRTAZAPINE. [Concomitant]
     Active Substance: MIRTAZAPINE
     Dosage: 15 MG, 1X/DAY
     Route: 065
  7. INFLECTRA [Suspect]
     Active Substance: INFLIXIMAB-DYYB
     Dosage: 500 MG, (EVERY 6 WEEKS)
     Route: 042
     Dates: start: 20180302
  8. INFLECTRA [Suspect]
     Active Substance: INFLIXIMAB-DYYB
     Dosage: 500 MG,  (EVERY 6 WEEKS)
     Route: 042
     Dates: start: 20180413
  9. LIDOCAINE. [Concomitant]
     Active Substance: LIDOCAINE
     Dosage: UNK, PRN
     Route: 065
  10. TRIDURAL [Concomitant]
     Active Substance: TRAMADOL HYDROCHLORIDE
     Dosage: 300 MG, DAILY (100 MG AM, 200 PM)
     Route: 065
  11. ACETAMINOPHEN. [Concomitant]
     Active Substance: ACETAMINOPHEN
     Dosage: UNK, AS NEEDED
  12. TRAMADOL. [Concomitant]
     Active Substance: TRAMADOL
     Dosage: UNK UNK, AS NEEDED
     Route: 065

REACTIONS (13)
  - Disease progression [Unknown]
  - Back pain [Unknown]
  - Weight decreased [Unknown]
  - Drug effect incomplete [Unknown]
  - Lower respiratory tract infection [Recovering/Resolving]
  - Product use issue [Unknown]
  - Body temperature increased [Unknown]
  - Inappropriate schedule of drug administration [Unknown]
  - Nausea [Unknown]
  - Hypokinesia [Unknown]
  - Gait inability [Unknown]
  - Product use issue [Unknown]
  - Pruritus [Unknown]

NARRATIVE: CASE EVENT DATE: 200706
